FAERS Safety Report 19188676 (Version 1)
Quarter: 2021Q2

REPORT INFORMATION
  Report Type: Spontaneous
  Country: US (occurrence: US)
  Receive Date: 20210427
  Receipt Date: 20210427
  Transmission Date: 20210717
  Serious: Yes (Disabling)
  Sender: FDA-Public Use
  Company Number: None

PATIENT
  Age: 65 Year
  Sex: Female
  Weight: 63 kg

DRUGS (9)
  1. LEVOTHYROZINE [Concomitant]
  2. CALCIUM [Concomitant]
     Active Substance: CALCIUM
  3. VITAMIN D [Concomitant]
     Active Substance: VITAMIN D NOS
  4. METRONIDAZOLE. [Suspect]
     Active Substance: METRONIDAZOLE
     Indication: DIVERTICULITIS
     Dosage: ?          QUANTITY:21 TABLET(S);?
     Route: 048
     Dates: start: 20210420, end: 20210424
  5. LIOTHYRONINE [Concomitant]
     Active Substance: LIOTHYRONINE
  6. ZOLPIDEM [Concomitant]
     Active Substance: ZOLPIDEM TARTRATE
  7. VITAMIN B12 [Concomitant]
     Active Substance: CYANOCOBALAMIN
  8. LUTIEN EYE VITAMIN [Concomitant]
  9. CIPROFLOXACIN. [Suspect]
     Active Substance: CIPROFLOXACIN
     Indication: DIVERTICULITIS
     Dosage: ?          QUANTITY:14 TABLET(S);?
     Route: 048
     Dates: start: 20210420, end: 20210421

REACTIONS (6)
  - Balance disorder [None]
  - Deafness [None]
  - Impaired quality of life [None]
  - Pruritus [None]
  - Arthralgia [None]
  - Tinnitus [None]

NARRATIVE: CASE EVENT DATE: 20210424
